FAERS Safety Report 14121835 (Version 1)
Quarter: 2017Q4

REPORT INFORMATION
  Report Type: Spontaneous
  Country: US (occurrence: US)
  Receive Date: 20171024
  Receipt Date: 20171024
  Transmission Date: 20180321
  Serious: Yes (Other)
  Sender: FDA-Public Use
  Company Number: US-SA-2017SA204188

PATIENT
  Age: 80 Year
  Sex: Male
  Weight: 62.59 kg

DRUGS (1)
  1. PLAVIX [Suspect]
     Active Substance: CLOPIDOGREL BISULFATE
     Indication: CARDIAC DISORDER
     Route: 048

REACTIONS (3)
  - Weight decreased [Unknown]
  - Cardiac disorder [Unknown]
  - Syncope [Unknown]
